FAERS Safety Report 7892848-6 (Version None)
Quarter: 2011Q4

REPORT INFORMATION
  Report Type: 
  Country: None (occurrence: None)
  Receive Date: 20111104
  Receipt Date: 20111028
  Transmission Date: 20120403
  Serious: Yes (Hospitalization)
  Sender: FDA-Public Use
  Company Number: IT-JNJFOC-20111100661

PATIENT
  Sex: Female

DRUGS (17)
  1. PHENYTOIN SODIUM [Suspect]
     Indication: EPILEPSY
     Route: 048
     Dates: start: 20111020, end: 20111024
  2. PHENYTOIN SODIUM [Suspect]
     Route: 048
     Dates: start: 20110929, end: 20111001
  3. VALIUM [Concomitant]
     Route: 048
     Dates: start: 20111020, end: 20111023
  4. HALOPERIDOL [Suspect]
     Route: 048
     Dates: start: 20111015, end: 20111018
  5. OXCARBAZEPINE [Suspect]
     Route: 048
     Dates: start: 20111005, end: 20111006
  6. VALIUM [Concomitant]
     Indication: PRODUCT USED FOR UNKNOWN INDICATION
     Route: 048
     Dates: start: 20111013, end: 20111015
  7. VALIUM [Concomitant]
     Route: 048
     Dates: start: 20111024, end: 20111026
  8. PHENYTOIN SODIUM [Suspect]
     Route: 048
     Dates: start: 20111005, end: 20111019
  9. OXCARBAZEPINE [Suspect]
     Route: 048
     Dates: start: 20111020, end: 20111024
  10. OXCARBAZEPINE [Suspect]
     Route: 048
     Dates: start: 20110929, end: 20111001
  11. VALIUM [Concomitant]
     Route: 048
     Dates: start: 20111007, end: 20111011
  12. HALOPERIDOL [Suspect]
     Indication: PSYCHOTIC DISORDER
     Route: 048
     Dates: start: 20110929, end: 20111001
  13. HALOPERIDOL [Suspect]
     Route: 048
     Dates: start: 20111020, end: 20111024
  14. OXCARBAZEPINE [Suspect]
     Route: 048
     Dates: start: 20111011, end: 20111017
  15. HALOPERIDOL [Suspect]
     Route: 048
     Dates: start: 20111007, end: 20111010
  16. OXCARBAZEPINE [Suspect]
     Indication: EPILEPSY
     Route: 048
     Dates: start: 20111018, end: 20111020
  17. OXCARBAZEPINE [Suspect]
     Route: 048
     Dates: start: 20111007, end: 20111010

REACTIONS (1)
  - STEVENS-JOHNSON SYNDROME [None]
